FAERS Safety Report 4585145-8 (Version None)
Quarter: 2005Q1

REPORT INFORMATION
  Report Type: 
  Country: None (occurrence: None)
  Receive Date: 20050217
  Receipt Date: 20050111
  Transmission Date: 20050727
  Serious: No
  Sender: FDA-Public Use
  Company Number: US-GLAXOSMITHKLINE-A0540240A

PATIENT
  Age: 30 Year
  Sex: Female

DRUGS (4)
  1. WELLBUTRIN XL [Suspect]
     Indication: ANXIETY
     Dosage: 300MG PER DAY
     Route: 048
  2. ORTHO-NOVUM [Concomitant]
  3. ALLEGRA [Concomitant]
  4. PROZAC [Concomitant]

REACTIONS (6)
  - AGITATION [None]
  - ANXIETY [None]
  - HEADACHE [None]
  - HOT FLUSH [None]
  - INSOMNIA [None]
  - TINNITUS [None]
